FAERS Safety Report 7598566-6 (Version None)
Quarter: 2011Q3

REPORT INFORMATION
  Report Type: 
  Country: None (occurrence: None)
  Receive Date: 20110708
  Receipt Date: 20110629
  Transmission Date: 20111222
  Serious: Yes (Hospitalization)
  Sender: FDA-Public Use
  Company Number: US-ASTRAZENECA-2011SE38968

PATIENT
  Age: 63 Year
  Sex: Female
  Weight: 72.6 kg

DRUGS (4)
  1. WELLBUTRIN [Concomitant]
  2. BUSPAR [Concomitant]
  3. THYROID HORMONE THERAPY [Concomitant]
  4. SEROQUEL [Suspect]
     Indication: BIPOLAR I DISORDER
     Route: 048
     Dates: start: 20050101

REACTIONS (4)
  - MENTAL DISORDER [None]
  - SUICIDAL IDEATION [None]
  - DRUG DOSE OMISSION [None]
  - DEPRESSION [None]
